FAERS Safety Report 9271972 (Version 2)
Quarter: 2013Q2

REPORT INFORMATION
  Report Type: Report from Study
  Country: US (occurrence: US)
  Receive Date: 20130506
  Receipt Date: 20130524
  Transmission Date: 20140414
  Serious: Yes (Life-Threatening, Hospitalization, Other)
  Sender: FDA-Public Use
  Company Number: US-ACTELION-A-NJ2013-82024

PATIENT
  Age: 5 Year
  Sex: Female

DRUGS (2)
  1. TRACLEER [Suspect]
     Indication: PULMONARY ARTERIAL HYPERTENSION
     Dosage: UNK
     Route: 048
  2. SILDENAFIL [Concomitant]

REACTIONS (8)
  - Coronary arterial stent insertion [Recovered/Resolved]
  - Coronary angioplasty [Recovered/Resolved]
  - Feeding disorder of infancy or early childhood [Recovered/Resolved]
  - Gastrostomy [Recovered/Resolved]
  - Pulmonary oedema [Recovered/Resolved]
  - Heart rate irregular [Recovered/Resolved]
  - Pulmonary arterial hypertension [Recovered/Resolved]
  - Oxygen saturation decreased [Recovered/Resolved]
